FAERS Safety Report 8783258 (Version 1)
Quarter: 2012Q4

REPORT INFORMATION
  Report Type: 
  Country: AU (occurrence: AU)
  Receive Date: 20120913
  Receipt Date: 20120913
  Transmission Date: 20130627
  Serious: Yes (Disabling)
  Sender: FDA-Public Use
  Company Number: AU-JNJFOC-20120902455

PATIENT
  Age: 11 Year
  Sex: Male
  Weight: 32 kg

DRUGS (1)
  1. NIZORAL [Suspect]
     Indication: PRODUCT USED FOR UNKNOWN INDICATION
     Route: 061
     Dates: start: 20110425, end: 20110428

REACTIONS (2)
  - Suicidal ideation [Recovered/Resolved]
  - Self injurious behaviour [Recovered/Resolved]
